FAERS Safety Report 5370777-X (Version None)
Quarter: 2007Q2

REPORT INFORMATION
  Report Type: 
  Country: None (occurrence: None)
  Receive Date: 20070626
  Receipt Date: 20070622
  Transmission Date: 20071010
  Serious: Yes (Death)
  Sender: FDA-Public Use
  Company Number: B0456551A

PATIENT

DRUGS (2)
  1. TOPOTECAN [Suspect]
     Dosage: .75MGM2 PER DAY
     Route: 042
  2. CYCLOPHOSPHAMIDE [Suspect]
     Dosage: 250MGM2 PER DAY
     Route: 042

REACTIONS (2)
  - EWING'S SARCOMA RECURRENT [None]
  - RESPIRATORY FAILURE [None]
